FAERS Safety Report 6712411-X (Version None)
Quarter: 2010Q2

REPORT INFORMATION
  Report Type: 
  Country: None (occurrence: None)
  Receive Date: 20100505
  Receipt Date: 20100429
  Transmission Date: 20101027
  Serious: Yes (Hospitalization, Other)
  Sender: FDA-Public Use
  Company Number: CR-ABBOTT-10P-069-0641528-00

PATIENT
  Age: 36 Year
  Sex: Female

DRUGS (2)
  1. KALETRA [Suspect]
     Indication: PROPHYLAXIS AGAINST HIV INFECTION
     Dosage: 200MG/50MG, 2 TABLETS BID
     Route: 048
     Dates: start: 20100301, end: 20100401
  2. LAMIVUDINE + ZIDOVUDINE [Concomitant]
     Indication: HIV INFECTION
     Route: 048
     Dates: start: 20100301, end: 20100401

REACTIONS (4)
  - MONONEURITIS [None]
  - MYALGIA [None]
  - NAUSEA [None]
  - VASCULITIS [None]
